FAERS Safety Report 5471460-2 (Version None)
Quarter: 2007Q3

REPORT INFORMATION
  Report Type: 
  Country: None (occurrence: None)
  Receive Date: 20070928
  Receipt Date: 20061102
  Transmission Date: 20080115
  Serious: No
  Sender: FDA-Public Use
  Company Number: US-BRISTOL-MYERS SQUIBB COMPANY-13564042

PATIENT
  Age: 63 Year
  Sex: Male
  Weight: 82 kg

DRUGS (15)
  1. DEFINITY [Suspect]
     Indication: ECHOCARDIOGRAM
     Route: 042
  2. ASPIRIN [Concomitant]
  3. BENICAR [Concomitant]
  4. LIPITOR [Concomitant]
  5. PLAVIX [Concomitant]
  6. PREVACID [Concomitant]
  7. TOPROL-XL [Concomitant]
  8. LASIX [Concomitant]
  9. XANAX [Concomitant]
  10. SINGULAIR [Concomitant]
  11. COMBIVENT [Concomitant]
  12. ADVAIR DISKUS 100/50 [Concomitant]
  13. LORTAB [Concomitant]
  14. SPIRIVA [Concomitant]
  15. AMBIEN [Concomitant]

REACTIONS (2)
  - BACK PAIN [None]
  - MUSCLE SPASMS [None]
